FAERS Safety Report 12633288 (Version 2)
Quarter: 2016Q3

REPORT INFORMATION
  Report Type: Spontaneous
  Country: US (occurrence: US)
  Receive Date: 20160808
  Receipt Date: 20160808
  Transmission Date: 20161109
  Serious: No
  Sender: FDA-Public Use
  Company Number: US-BEH-2016060351

PATIENT
  Sex: Male
  Weight: 94 kg

DRUGS (22)
  1. HIZENTRA [Suspect]
     Active Substance: HUMAN IMMUNOGLOBULIN G
     Indication: MULTIPLE SCLEROSIS
     Route: 058
  2. CLONIDINE. [Concomitant]
     Active Substance: CLONIDINE
  3. XYZAL [Concomitant]
     Active Substance: LEVOCETIRIZINE DIHYDROCHLORIDE
  4. NEURONTIN [Concomitant]
     Active Substance: GABAPENTIN
  5. PROVENTIL [Concomitant]
     Active Substance: ALBUTEROL
  6. HIZENTRA [Suspect]
     Active Substance: HUMAN IMMUNOGLOBULIN G
     Route: 058
  7. LMX [Concomitant]
     Active Substance: LIDOCAINE
  8. AMANTADINE [Concomitant]
     Active Substance: AMANTADINE
  9. OMNARIS [Concomitant]
     Active Substance: CICLESONIDE
  10. CYANOCOBALAMIN. [Concomitant]
     Active Substance: CYANOCOBALAMIN
  11. DIPHENHYDRAMINE. [Concomitant]
     Active Substance: DIPHENHYDRAMINE
  12. EPIPEN [Concomitant]
     Active Substance: EPINEPHRINE
  13. VITAMIN D [Concomitant]
     Active Substance: CHOLECALCIFEROL
  14. ZANAFLEX [Concomitant]
     Active Substance: TIZANIDINE HYDROCHLORIDE
  15. HIZENTRA [Suspect]
     Active Substance: HUMAN IMMUNOGLOBULIN G
     Indication: IMMUNODEFICIENCY COMMON VARIABLE
     Route: 058
  16. LASIX [Concomitant]
     Active Substance: FUROSEMIDE
  17. AMITRIPTYLINE [Concomitant]
     Active Substance: AMITRIPTYLINE
  18. KLONOPIN [Concomitant]
     Active Substance: CLONAZEPAM
  19. BACLOFEN. [Concomitant]
     Active Substance: BACLOFEN
  20. LIDOCAINE-PRILOCAINE [Concomitant]
     Active Substance: LIDOCAINE\PRILOCAINE
  21. NIACIN. [Concomitant]
     Active Substance: NIACIN
  22. TYSARBI [Concomitant]

REACTIONS (1)
  - Sinus disorder [Unknown]
